FAERS Safety Report 12289492 (Version 11)
Quarter: 2016Q4

REPORT INFORMATION
  Report Type: Report from Study
  Country: CZ (occurrence: CZ)
  Receive Date: 20160421
  Receipt Date: 20161011
  Transmission Date: 20170207
  Serious: Yes (Hospitalization)
  Sender: FDA-Public Use
  Company Number: CZ-EISAI MEDICAL RESEARCH-EC-2016-016072

PATIENT
  Age: 61 Year
  Sex: Female
  Weight: 82 kg

DRUGS (24)
  1. PRESTRIUM NEO [Concomitant]
  2. KARBAMAZEPIN [Concomitant]
     Active Substance: CARBAMAZEPINE
  3. FYCOMPA [Suspect]
     Active Substance: PERAMPANEL
     Route: 048
     Dates: start: 20160329, end: 20160330
  4. FYCOMPA [Suspect]
     Active Substance: PERAMPANEL
     Route: 048
     Dates: start: 20160331, end: 20160404
  5. RIVOTRIL [Concomitant]
     Active Substance: CLONAZEPAM
  6. FYCOMPA [Suspect]
     Active Substance: PERAMPANEL
     Route: 048
     Dates: start: 20160223, end: 20160328
  7. WARFARIN [Concomitant]
     Active Substance: WARFARIN
  8. VASOCARDIN [Concomitant]
     Active Substance: METOPROLOL
  9. CLONAZEPAM. [Concomitant]
     Active Substance: CLONAZEPAM
  10. FYCOMPA [Suspect]
     Active Substance: PERAMPANEL
     Indication: EPILEPSY
     Route: 048
     Dates: start: 20151119, end: 20151203
  11. FYCOMPA [Suspect]
     Active Substance: PERAMPANEL
     Route: 048
     Dates: start: 20160405, end: 20160411
  12. ATORIS [Concomitant]
     Active Substance: ATORVASTATIN CALCIUM
  13. LEVETIRACETAM. [Concomitant]
     Active Substance: LEVETIRACETAM
  14. LUSOPRESS [Concomitant]
     Active Substance: NITRENDIPINE
  15. ISOLYTE [Concomitant]
  16. FYCOMPA [Suspect]
     Active Substance: PERAMPANEL
     Route: 048
     Dates: start: 20151204, end: 20160126
  17. NORALGIN [Concomitant]
  18. KCL [Concomitant]
     Active Substance: POTASSIUM CHLORIDE
  19. APAURIN [Concomitant]
     Active Substance: DIAZEPAM
  20. FYCOMPA [Suspect]
     Active Substance: PERAMPANEL
     Route: 048
     Dates: start: 20160127, end: 20160222
  21. CITALOPRAM [Concomitant]
     Active Substance: CITALOPRAM HYDROBROMIDE
  22. ZALDIAR [Concomitant]
     Active Substance: ACETAMINOPHEN\TRAMADOL HYDROCHLORIDE
  23. MGSO4 [Concomitant]
     Active Substance: MAGNESIUM SULFATE
  24. NEUROL [Concomitant]
     Active Substance: ALPRAZOLAM

REACTIONS (8)
  - Vertigo [Recovered/Resolved]
  - Fatigue [Recovered/Resolved]
  - Atrial flutter [Recovered/Resolved]
  - Seizure cluster [Recovered/Resolved]
  - Fall [Recovered/Resolved]
  - Spinal compression fracture [Recovered/Resolved with Sequelae]
  - Epilepsy [Recovered/Resolved]
  - Psychotic disorder [Recovering/Resolving]

NARRATIVE: CASE EVENT DATE: 20160224
